FAERS Safety Report 4548862-1 (Version None)
Quarter: 2004Q4

REPORT INFORMATION
  Report Type: 
  Country: None (occurrence: None)
  Receive Date: 20041227
  Receipt Date: 20041129
  Transmission Date: 20050328
  Serious: No
  Sender: FDA-Public Use
  Company Number: 04P-163-0281590-00

PATIENT
  Age: 67 Year
  Sex: Female

DRUGS (1)
  1. HUMIRA [Suspect]
     Indication: RHEUMATOID ARTHRITIS
     Dosage: 40 MG, 1 IN 2 WK, SUBCUTANEOUS
     Route: 058
     Dates: start: 20040101

REACTIONS (6)
  - INJECTION SITE ERYTHEMA [None]
  - NAIL DISCOLOURATION [None]
  - ONYCHOLYSIS [None]
  - TINNITUS [None]
  - VAGINAL DISCHARGE [None]
  - VISION BLURRED [None]
